FAERS Safety Report 16582907 (Version 4)
Quarter: 2019Q4

REPORT INFORMATION
  Report Type: Spontaneous
  Country: FR (occurrence: FR)
  Receive Date: 20190717
  Receipt Date: 20191013
  Transmission Date: 20200122
  Serious: Yes (Other)
  Sender: FDA-Public Use
  Company Number: FR-BEH-2019104249

PATIENT
  Age: 44 Year
  Sex: Female
  Weight: 91 kg

DRUGS (42)
  1. BERINERT [Suspect]
     Active Substance: HUMAN C1-ESTERASE INHIBITOR
     Indication: HEREDITARY ANGIOEDEMA
     Dosage: 20 INTERNATIONAL UNIT/KILOGRAM, TOT
     Route: 042
     Dates: start: 20190603, end: 20190603
  2. REMIFENTANIL [Concomitant]
     Active Substance: REMIFENTANIL
     Indication: DYSPNOEA
  3. NEFOPAM [Concomitant]
     Active Substance: NEFOPAM
     Indication: DYSPNOEA
     Route: 065
  4. XYLOCAINE [Concomitant]
     Active Substance: LIDOCAINE HYDROCHLORIDE
     Indication: ASTHENIA
  5. LACTATED RINGERS SOLUTION [Concomitant]
     Active Substance: CALCIUM CHLORIDE\POTASSIUM CHLORIDE\SODIUM CHLORIDE\SODIUM LACTATE
     Indication: MUSCULAR WEAKNESS
  6. NEFOPAMUM [Suspect]
     Active Substance: NEFOPAM
     Indication: ANAESTHESIA
     Route: 042
     Dates: start: 20190603, end: 20190603
  7. AUGMENTIN [Concomitant]
     Active Substance: AMOXICILLIN\CLAVULANATE POTASSIUM
     Indication: ASTHENIA
  8. AUGMENTIN [Concomitant]
     Active Substance: AMOXICILLIN\CLAVULANATE POTASSIUM
     Indication: MUSCULAR WEAKNESS
  9. NEFOPAM [Concomitant]
     Active Substance: NEFOPAM
     Indication: ASTHENIA
  10. LACTATED RINGERS SOLUTION [Concomitant]
     Active Substance: CALCIUM CHLORIDE\POTASSIUM CHLORIDE\SODIUM CHLORIDE\SODIUM LACTATE
     Indication: ASTHENIA
     Route: 065
  11. XYLOCAINE WITH EPINEPHRINE [Suspect]
     Active Substance: EPINEPHRINE BITARTRATE\LIDOCAINE HYDROCHLORIDE
     Indication: ANAESTHESIA
     Route: 042
     Dates: start: 20190603, end: 20190603
  12. REMIFENTANIL [Concomitant]
     Active Substance: REMIFENTANIL
     Indication: ASTHENIA
     Route: 065
  13. XYLOCAINE [Concomitant]
     Active Substance: LIDOCAINE HYDROCHLORIDE
     Indication: MUSCULAR WEAKNESS
  14. KETAMINE [Concomitant]
     Active Substance: KETAMINE
     Indication: ASTHENIA
  15. PARACETAMOL [Concomitant]
     Active Substance: ACETAMINOPHEN
     Indication: MUSCULAR WEAKNESS
  16. FIRAZYR [Concomitant]
     Active Substance: ICATIBANT ACETATE
     Indication: HEREDITARY ANGIOEDEMA
  17. PARACETAMOL [Concomitant]
     Active Substance: ACETAMINOPHEN
     Indication: ASTHENIA
  18. LANADELUMAB [Suspect]
     Active Substance: LANADELUMAB
     Indication: HEREDITARY ANGIOEDEMA
     Dosage: 600 MILLIGRAM, QMT, 300 MILLIGRAM, 2X A MONTH (TWICE MONTHLY), CUMULATIVE DOSE TO FIRST REACTION (NU
     Route: 058
     Dates: start: 20190211, end: 20190617
  19. PROPOFOL. [Concomitant]
     Active Substance: PROPOFOL
     Indication: MUSCULAR WEAKNESS
  20. KETAMINE [Concomitant]
     Active Substance: KETAMINE
     Indication: DYSPNOEA
  21. LACTATED RINGERS SOLUTION [Concomitant]
     Active Substance: CALCIUM CHLORIDE\POTASSIUM CHLORIDE\SODIUM CHLORIDE\SODIUM LACTATE
     Indication: DYSPNOEA
  22. BERINERT [Suspect]
     Active Substance: HUMAN C1-ESTERASE INHIBITOR
     Indication: PROPHYLAXIS
  23. AUGMENTIN [Suspect]
     Active Substance: AMOXICILLIN\CLAVULANATE POTASSIUM
     Indication: ANAESTHESIA
     Route: 042
     Dates: start: 20190603, end: 20190603
  24. KETOPROFENE [KETOPROFEN] [Suspect]
     Active Substance: KETOPROFEN
     Indication: ANAESTHESIA
     Route: 042
     Dates: start: 20190603, end: 20190603
  25. AUGMENTIN [Concomitant]
     Active Substance: AMOXICILLIN\CLAVULANATE POTASSIUM
     Indication: DYSPNOEA
     Route: 065
  26. PROPOFOL. [Concomitant]
     Active Substance: PROPOFOL
     Indication: DYSPNOEA
  27. REMIFENTANIL [Concomitant]
     Active Substance: REMIFENTANIL
     Indication: MUSCULAR WEAKNESS
  28. KETAMINE [Concomitant]
     Active Substance: KETAMINE
     Indication: MUSCULAR WEAKNESS
     Route: 065
  29. PARACETAMOL [Suspect]
     Active Substance: ACETAMINOPHEN
     Indication: ANAESTHESIA
     Route: 042
     Dates: start: 20190603, end: 20190603
  30. DEXAMETHASONE. [Concomitant]
     Active Substance: DEXAMETHASONE
     Indication: DYSPNOEA
     Route: 065
  31. DEXAMETHASONE. [Concomitant]
     Active Substance: DEXAMETHASONE
     Indication: ASTHENIA
  32. DEXAMETHASONE. [Concomitant]
     Active Substance: DEXAMETHASONE
     Indication: MUSCULAR WEAKNESS
  33. XYLOCAINE [Concomitant]
     Active Substance: LIDOCAINE HYDROCHLORIDE
     Indication: DYSPNOEA
     Route: 065
  34. BERINERT [Suspect]
     Active Substance: HUMAN C1-ESTERASE INHIBITOR
     Indication: HEREDITARY ANGIOEDEMA
     Dosage: 20 INTERNATIONAL UNIT/KILOGRAM, TOT
     Route: 042
     Dates: start: 20190603, end: 20190603
  35. BERINERT [Suspect]
     Active Substance: HUMAN C1-ESTERASE INHIBITOR
     Indication: PROPHYLAXIS
  36. KETAMINE [Suspect]
     Active Substance: KETAMINE
     Indication: ANAESTHESIA
     Route: 042
     Dates: start: 20190603, end: 20190603
  37. PROPOFOL. [Suspect]
     Active Substance: PROPOFOL
     Indication: ANAESTHESIA
     Route: 042
     Dates: start: 20190603, end: 20190603
  38. REMIFENTANIL [Suspect]
     Active Substance: REMIFENTANIL
     Indication: ANAESTHESIA
     Route: 042
     Dates: start: 20190603, end: 20190603
  39. DEXAMETHASONE. [Suspect]
     Active Substance: DEXAMETHASONE
     Indication: ANAESTHESIA
     Route: 042
     Dates: start: 20190603, end: 20190603
  40. PROPOFOL. [Concomitant]
     Active Substance: PROPOFOL
     Indication: ASTHENIA
  41. NEFOPAM [Concomitant]
     Active Substance: NEFOPAM
     Indication: MUSCULAR WEAKNESS
  42. PARACETAMOL [Concomitant]
     Active Substance: ACETAMINOPHEN
     Indication: DYSPNOEA
     Route: 065

REACTIONS (5)
  - Muscle fatigue [Recovered/Resolved]
  - Dyspnoea [Unknown]
  - Asthenia [Recovering/Resolving]
  - Dyspnoea exertional [Recovered/Resolved]
  - Muscular weakness [Unknown]

NARRATIVE: CASE EVENT DATE: 20190603
